FAERS Safety Report 6679178-5 (Version None)
Quarter: 2010Q2

REPORT INFORMATION
  Report Type: 
  Country: None (occurrence: None)
  Receive Date: 20100413
  Receipt Date: 20100330
  Transmission Date: 20101027
  Serious: Yes (Hospitalization)
  Sender: FDA-Public Use
  Company Number: AU-JNJFOC-20100308425

PATIENT
  Sex: Male

DRUGS (5)
  1. CG5503 BASE [Suspect]
     Route: 048
  2. CG5503 BASE [Suspect]
     Indication: PAIN
     Route: 048
  3. ASASANTIN [Concomitant]
  4. PULMICORT [Concomitant]
     Route: 065
  5. ALL OTHER THERAPEUTIC PRODUCTS [Concomitant]
     Route: 065

REACTIONS (3)
  - DYSPHAGIA [None]
  - RENAL PAIN [None]
  - TRANSIENT ISCHAEMIC ATTACK [None]
